FAERS Safety Report 5789149-9 (Version None)
Quarter: 2008Q2

REPORT INFORMATION
  Report Type: 
  Country: None (occurrence: None)
  Receive Date: 20080626
  Receipt Date: 20080613
  Transmission Date: 20081010
  Serious: Yes (Hospitalization)
  Sender: FDA-Public Use
  Company Number: DE-ELI_LILLY_AND_COMPANY-DE200806003243

PATIENT
  Age: 87 Year
  Sex: Male
  Weight: 66 kg

DRUGS (9)
  1. CYMBALTA [Suspect]
     Indication: DEPRESSION
     Dosage: 30 MG, DAILY (1/D)
     Route: 048
     Dates: start: 20080501, end: 20080506
  2. CIPRAMIL [Concomitant]
     Dosage: 40 MG, UNKNOWN
     Dates: start: 20080410, end: 20080428
  3. TAMSULOSIN HCL [Concomitant]
     Indication: URINARY TRACT DISORDER
     Dosage: 0.4 MG, DAILY (1/D)
     Route: 048
  4. DURAGESIC-100 [Concomitant]
     Indication: ANALGESIC THERAPY
     Dosage: 5 UG, UNK
     Dates: start: 20080316
  5. LYRICA [Concomitant]
     Dosage: 75 MG, DAILY (1/D)
     Route: 048
     Dates: start: 20080411, end: 20080413
  6. LYRICA [Concomitant]
     Dosage: 150 MG, DAILY (1/D)
     Route: 048
     Dates: start: 20080414
  7. SEROQUEL [Concomitant]
     Dosage: 50 MG, DAILY (1/D)
     Route: 048
     Dates: start: 20080129, end: 20080325
  8. SEROQUEL [Concomitant]
     Dosage: 75 MG, DAILY (1/D)
     Route: 048
     Dates: start: 20080326
  9. ACTRAPHANE [Concomitant]
     Indication: DIABETES MELLITUS
     Dosage: 14 IU, DAILY (1/D)
     Route: 058

REACTIONS (2)
  - PARKINSONISM [None]
  - URINARY TRACT INFECTION [None]
